FAERS Safety Report 22138632 (Version 2)
Quarter: 2023Q2

REPORT INFORMATION
  Report Type: Spontaneous
  Country: US (occurrence: US)
  Receive Date: 20230326
  Receipt Date: 20230417
  Transmission Date: 20230722
  Serious: No
  Sender: FDA-Public Use
  Company Number: US-BAUSCHBL-2023BNL002390

PATIENT
  Age: 39 Year
  Sex: Female
  Weight: 50.848 kg

DRUGS (2)
  1. LUMIFY [Suspect]
     Active Substance: BRIMONIDINE TARTRATE
     Indication: Asthenopia
     Dosage: PATIENT SAID, USED ONLY 2 TIMES, EVENTS HAPPENED IMMEDIATELY AFTER SUSPECT USE
     Route: 047
     Dates: start: 202303, end: 2023
  2. LUMIFY [Suspect]
     Active Substance: BRIMONIDINE TARTRATE

REACTIONS (2)
  - Headache [Recovered/Resolved]
  - Photophobia [Recovered/Resolved]

NARRATIVE: CASE EVENT DATE: 20230301
